FAERS Safety Report 7961292-5 (Version None)
Quarter: 2011Q4

REPORT INFORMATION
  Report Type: 
  Country: None (occurrence: None)
  Receive Date: 20111207
  Receipt Date: 20111128
  Transmission Date: 20120403
  Serious: Yes (Hospitalization, Other)
  Sender: FDA-Public Use
  Company Number: IE-US-EMD SERONO, INC.-7036033

PATIENT
  Sex: Female

DRUGS (3)
  1. REBIF [Suspect]
     Route: 058
     Dates: start: 20111013, end: 20111028
  2. REBIF [Suspect]
     Indication: RELAPSING-REMITTING MULTIPLE SCLEROSIS
     Route: 058
     Dates: start: 20101026, end: 20110621
  3. REBIF [Suspect]
     Dates: start: 20110706, end: 20111013

REACTIONS (7)
  - HYSTERECTOMY [None]
  - VISION BLURRED [None]
  - DYSARTHRIA [None]
  - MUSCULAR WEAKNESS [None]
  - OOPHORECTOMY [None]
  - URINARY TRACT INFECTION [None]
  - NOSOCOMIAL INFECTION [None]
